FAERS Safety Report 12330593 (Version 1)
Quarter: 2016Q2

REPORT INFORMATION
  Report Type: Report from Study
  Country: US (occurrence: US)
  Receive Date: 20160504
  Receipt Date: 20160504
  Transmission Date: 20160815
  Serious: No
  Sender: FDA-Public Use
  Company Number: US-AMGEN-USASL2016052643

PATIENT
  Age: 56 Year
  Sex: Female

DRUGS (1)
  1. ENBREL [Suspect]
     Active Substance: ETANERCEPT
     Indication: PRODUCT USED FOR UNKNOWN INDICATION
     Dosage: 50 MG, QWK
     Route: 065
     Dates: end: 201604

REACTIONS (7)
  - Respiratory tract congestion [Unknown]
  - Ear discomfort [Unknown]
  - Upper respiratory tract infection [Unknown]
  - Injection site reaction [Recovered/Resolved]
  - Chest discomfort [Unknown]
  - Sinusitis [Unknown]
  - Injection site swelling [Recovered/Resolved]
